FAERS Safety Report 7280363-2 (Version None)
Quarter: 2011Q1

REPORT INFORMATION
  Report Type: 
  Country: None (occurrence: None)
  Receive Date: 20110208
  Receipt Date: 20110204
  Transmission Date: 20110831
  Serious: Yes (Hospitalization)
  Sender: FDA-Public Use
  Company Number: FR-ABBOTT-11P-056-0702930-00

PATIENT
  Sex: Male

DRUGS (3)
  1. NORVIR [Suspect]
     Indication: HIV INFECTION
  2. TRIAMCINOLONE ACETONIDE [Interacting]
     Indication: SCIATICA
  3. PROTEASE INHIBITOR (NOS) [Concomitant]
     Indication: HIV INFECTION

REACTIONS (2)
  - DRUG INTERACTION [None]
  - CUSHING'S SYNDROME [None]
